FAERS Safety Report 8401849-0 (Version None)
Quarter: 2012Q2

REPORT INFORMATION
  Report Type: 
  Country: None (occurrence: None)
  Receive Date: 20120601
  Receipt Date: 20120523
  Transmission Date: 20120825
  Serious: Yes (Death, Disabling)
  Sender: FDA-Public Use
  Company Number: JP-SANOFI-AVENTIS-2012SA023704

PATIENT
  Age: 63 Year
  Sex: Male
  Weight: 62.5 kg

DRUGS (12)
  1. RABEPRAZOLE SODIUM [Concomitant]
     Indication: PROPHYLAXIS
     Route: 048
     Dates: start: 20100712, end: 20110610
  2. ROSUVASTATIN [Concomitant]
     Route: 048
     Dates: start: 20100914, end: 20110610
  3. CLOPIDOGREL BISULFATE [Suspect]
     Indication: ACUTE CORONARY SYNDROME
     Dosage: STARTING DOSE
     Route: 048
     Dates: start: 20100712, end: 20100712
  4. CARVEDILOL [Concomitant]
     Route: 048
     Dates: start: 20100810, end: 20110610
  5. CLOPIDOGREL BISULFATE [Suspect]
     Dosage: STARTING DOSE
     Route: 048
     Dates: start: 20100712, end: 20100712
  6. CLOPIDOGREL BISULFATE [Suspect]
     Dosage: MAINTENANCE DOSE
     Route: 048
     Dates: start: 20100712, end: 20110610
  7. ASPIRIN [Suspect]
     Route: 048
     Dates: start: 20100719, end: 20110610
  8. ASPIRIN [Suspect]
     Route: 048
     Dates: start: 20100711, end: 20100711
  9. ASPIRIN [Suspect]
     Route: 048
     Dates: start: 20100712, end: 20100718
  10. CLOPIDOGREL BISULFATE [Suspect]
     Dosage: MAINTENANCE DOSE
     Route: 048
     Dates: start: 20100712, end: 20110610
  11. TEMOCAPRIL [Concomitant]
     Route: 048
     Dates: start: 20100712, end: 20110610
  12. MAGNESIUM OXIDE [Concomitant]
     Indication: PROPHYLAXIS
     Route: 048
     Dates: start: 20100712, end: 20110610

REACTIONS (3)
  - BLOOD PRESSURE INCREASED [None]
  - CEREBRAL HAEMORRHAGE [None]
  - DIABETES MELLITUS [None]
